FAERS Safety Report 5382293-X (Version None)
Quarter: 2007Q3

REPORT INFORMATION
  Report Type: 
  Country: None (occurrence: None)
  Receive Date: 20070709
  Receipt Date: 20070627
  Transmission Date: 20080115
  Serious: Yes (Other)
  Sender: FDA-Public Use
  Company Number: US-PFIZER INC-2007036344

PATIENT
  Sex: Male
  Weight: 106.6 kg

DRUGS (7)
  1. CHANTIX [Suspect]
     Indication: NICOTINE DEPENDENCE
  2. GLUCOPHAGE [Concomitant]
     Route: 048
  3. AVANDIA [Concomitant]
     Route: 048
  4. HUMULIN N [Concomitant]
     Dosage: FREQ:36 UNITS QAM, 40 UNITS QPM
     Route: 058
  5. ZOCOR [Concomitant]
     Route: 048
  6. LEVOTHYROXINE SODIUM [Concomitant]
     Route: 048
  7. RISPERDAL [Concomitant]
     Route: 030

REACTIONS (1)
  - BLOOD GLUCOSE INCREASED [None]
